FAERS Safety Report 21513637 (Version 1)
Quarter: 2022Q4

REPORT INFORMATION
  Report Type: Spontaneous
  Country: NL (occurrence: NL)
  Receive Date: 20221027
  Receipt Date: 20221027
  Transmission Date: 20230113
  Serious: Yes (Other)
  Sender: FDA-Public Use
  Company Number: None

PATIENT
  Sex: Female
  Weight: 65 kg

DRUGS (1)
  1. ZOLEDRONIC ACID [Suspect]
     Active Substance: ZOLEDRONIC ACID
     Indication: Breast cancer
     Dosage: 1X EVERY SIX MONTHS 4 MG I.V.
     Route: 042
     Dates: start: 20210528, end: 20220923

REACTIONS (1)
  - Vitreous detachment [Not Recovered/Not Resolved]
